FAERS Safety Report 9208289 (Version 5)
Quarter: 2013Q3

REPORT INFORMATION
  Report Type: Spontaneous
  Country: JP (occurrence: JP)
  Receive Date: 20130403
  Receipt Date: 20130827
  Transmission Date: 20140515
  Serious: Yes (Life-Threatening, Hospitalization)
  Sender: FDA-Public Use
  Company Number: JP-B.I. PHARMACEUTICALS,INC./RIDGEFIELD-2013-BI-08963GD

PATIENT
  Age: 69 Year
  Sex: Female
  Weight: 52 kg

DRUGS (8)
  1. MIRAPEX [Suspect]
     Indication: PARKINSON^S DISEASE
     Dosage: 3 MG
     Route: 048
     Dates: start: 20120820, end: 20120918
  2. SIFROL [Suspect]
     Indication: PARKINSON^S DISEASE
     Dosage: 1.5 MG
     Route: 048
     Dates: start: 20120919, end: 20121009
  3. MADOPAR [Concomitant]
     Indication: PARKINSON^S DISEASE
     Dosage: 600 MG
     Route: 048
     Dates: start: 20110803, end: 20121001
  4. LEMONADES [Concomitant]
     Indication: PARKINSON^S DISEASE
     Route: 048
     Dates: start: 20110729, end: 20120918
  5. FP [Concomitant]
     Indication: PARKINSON^S DISEASE
     Dosage: 5 MG
     Route: 048
     Dates: start: 20100909, end: 20120918
  6. GASMOTIN [Concomitant]
     Indication: PARKINSON^S DISEASE
     Dosage: 15 MG
     Route: 048
     Dates: start: 20110729, end: 20120918
  7. GASCON [Concomitant]
     Indication: PARKINSON^S DISEASE
     Route: 048
     Dates: start: 20120806, end: 20120918
  8. METLIGINE [Concomitant]
     Indication: PARKINSON^S DISEASE
     Dosage: 2 MG
     Route: 048
     Dates: start: 20120814, end: 20120918

REACTIONS (4)
  - Parkinsonism hyperpyrexia syndrome [Recovered/Resolved]
  - Dyskinesia [Recovered/Resolved]
  - Hyperthermia [Recovered/Resolved]
  - Hallucination, visual [Recovered/Resolved]
